FAERS Safety Report 24684443 (Version 1)
Quarter: 2024Q4

REPORT INFORMATION
  Report Type: Spontaneous
  Country: PT (occurrence: PT)
  Receive Date: 20241202
  Receipt Date: 20241202
  Transmission Date: 20250115
  Serious: Yes (Death, Other)
  Sender: GENMAB
  Company Number: PT-ABBVIE-6026470

PATIENT
  Age: 75 Year
  Sex: Female

DRUGS (3)
  1. EPCORITAMAB [Suspect]
     Active Substance: EPCORITAMAB
     Indication: Diffuse large B-cell lymphoma
     Dosage: 48 MILLIGRAM FREQUENCY TEXT: DAY 15
     Route: 058
     Dates: start: 2024, end: 2024
  2. EPCORITAMAB [Suspect]
     Active Substance: EPCORITAMAB
     Dosage: 0.8 MILLIGRAM, FREQUENCY TEXT: DAY 8
     Route: 058
     Dates: start: 2024, end: 2024
  3. EPCORITAMAB [Suspect]
     Active Substance: EPCORITAMAB
     Dosage: 0.16 MILLIGRAM, FREQUENCY TEXT: DAY 1, LAST ADMIN DATE WAS 2024
     Route: 058
     Dates: start: 202409

REACTIONS (10)
  - Death [Fatal]
  - Diffuse large B-cell lymphoma [Unknown]
  - Pleural effusion [Unknown]
  - Immune effector cell-associated neurotoxicity syndrome [Unknown]
  - Cytokine release syndrome [Unknown]
  - Lymphadenopathy [Unknown]
  - Abdominal distension [Unknown]
  - Decreased appetite [Unknown]
  - Oedema peripheral [Unknown]
  - Back pain [Unknown]

NARRATIVE: CASE EVENT DATE: 20240101
